FAERS Safety Report 6820632-0 (Version None)
Quarter: 2010Q3

REPORT INFORMATION
  Report Type: 
  Country: None (occurrence: None)
  Receive Date: 20100707
  Receipt Date: 20100616
  Transmission Date: 20110219
  Serious: Yes (Hospitalization)
  Sender: FDA-Public Use
  Company Number: US-BIOGENIDEC-2010BI018516

PATIENT
  Age: 50 Year
  Sex: Female
  Weight: 90 kg

DRUGS (1)
  1. TYSABRI [Suspect]
     Indication: MULTIPLE SCLEROSIS
     Route: 042
     Dates: start: 20070201

REACTIONS (5)
  - FALL [None]
  - FEMUR FRACTURE [None]
  - LIGAMENT RUPTURE [None]
  - STAPHYLOCOCCAL INFECTION [None]
  - THYROID DISORDER [None]
